FAERS Safety Report 15130576 (Version 2)
Quarter: 2018Q3

REPORT INFORMATION
  Report Type: Spontaneous
  Country: US (occurrence: US)
  Receive Date: 20180711
  Receipt Date: 20180829
  Transmission Date: 20181010
  Serious: Yes (Death, Hospitalization, Other)
  Sender: FDA-Public Use
  Company Number: US-009507513-1807USA003620

PATIENT
  Age: 70 Year
  Sex: Male

DRUGS (14)
  1. ALIMTA [Suspect]
     Active Substance: PEMETREXED DISODIUM
  2. HUMULIN 70/30 [Concomitant]
     Active Substance: INSULIN HUMAN
     Dosage: 45 UNITS, TWICE PER DAY
  3. DECADRON [Concomitant]
     Active Substance: DEXAMETHASONE
     Dosage: 4 MG, BID
  4. PROTONIX [Concomitant]
     Active Substance: PANTOPRAZOLE SODIUM
     Dosage: 40 MG, QD
  5. FOLIC ACID. [Concomitant]
     Active Substance: FOLIC ACID
     Dosage: 1 MG, QD
  6. CELEXA [Concomitant]
     Active Substance: CITALOPRAM HYDROBROMIDE
     Dosage: 20 MG, QD
  7. NICOTINE. [Concomitant]
     Active Substance: NICOTINE
     Dosage: 24 MICROGRAM, QD, 24 HOURS
  8. KEYTRUDA [Suspect]
     Active Substance: PEMBROLIZUMAB
     Indication: LUNG CANCER METASTATIC
     Dosage: ONE CYCLE
     Dates: start: 20180525
  9. CARBOPLATIN. [Suspect]
     Active Substance: CARBOPLATIN
  10. VITAMIN D [Concomitant]
     Active Substance: CHOLECALCIFEROL
     Dosage: 1000 UNITS, UNK
  11. OXYCODONE [Concomitant]
     Active Substance: OXYCODONE
     Indication: BREAKTHROUGH PAIN
     Dosage: 15 MG,EVERY 4?6 HOURS PRN
  12. LACTULOSE. [Concomitant]
     Active Substance: LACTULOSE
     Dosage: 10 G, BID
     Route: 048
  13. DURAGESIC [Concomitant]
     Active Substance: FENTANYL
     Dosage: 100 MICROGRAM, EVERY 72 HOURS
  14. DURAGESIC [Concomitant]
     Active Substance: FENTANYL
     Dosage: 25 MICROGRAM, EVERY 72 HOURS

REACTIONS (3)
  - Death [Fatal]
  - Pneumonia [Unknown]
  - Respiratory failure [Unknown]

NARRATIVE: CASE EVENT DATE: 2018
